FAERS Safety Report 14773177 (Version 1)
Quarter: 2018Q2

REPORT INFORMATION
  Report Type: Other
  Country: ES (occurrence: ES)
  Receive Date: 20180418
  Receipt Date: 20180418
  Transmission Date: 20180711
  Serious: Yes (Life-Threatening, Hospitalization, Other)
  Sender: FDA-Public Use
  Company Number: ES-IPCA LABORATORIES LIMITED-IPC-2018-ES-000752

PATIENT
  Age: 53 Year
  Sex: Female

DRUGS (8)
  1. MICARDIS 80 MG COMPRIMIDOS [Concomitant]
     Indication: PRODUCT USED FOR UNKNOWN INDICATION
     Dosage: 0-0-1 ()
     Route: 048
     Dates: start: 20150101
  2. PREDNISONA [Concomitant]
     Active Substance: PREDNISONE
     Indication: PRODUCT USED FOR UNKNOWN INDICATION
     Dosage: 5 MG DIA ()
     Route: 048
     Dates: start: 20150101
  3. PULMICORT 0,25 MG/ML SUSPENSION PARA INHALACION POR  NEBULIZADOR, 1... [Concomitant]
     Indication: PRODUCT USED FOR UNKNOWN INDICATION
     Dosage: 1-0-1 ()
     Route: 055
     Dates: start: 20060101
  4. METFORMIN [Suspect]
     Active Substance: METFORMIN HYDROCHLORIDE
     Indication: DIABETES MELLITUS
     Dosage: UNK
     Route: 048
     Dates: start: 20170817, end: 20170909
  5. EMULIQUEN LAXANTE 478,26 MG/ML + 0,3 MG/ML EMULSION ORAL , 1 FRASCO... [Suspect]
     Active Substance: PARAFFIN\SODIUM PICOSULFATE
     Indication: PRODUCT USED FOR UNKNOWN INDICATION
     Dosage: 1-0-1 ()
     Route: 048
     Dates: start: 20170817, end: 20170909
  6. FUROSEMIDA [Concomitant]
     Active Substance: FUROSEMIDE
     Indication: PRODUCT USED FOR UNKNOWN INDICATION
     Route: 048
     Dates: start: 20150101
  7. OMEPRAZOL [Concomitant]
     Active Substance: OMEPRAZOLE
     Indication: PRODUCT USED FOR UNKNOWN INDICATION
     Dosage: 1 CP DIA (20MG)
     Route: 048
     Dates: start: 20150101
  8. LESCOL PROLIB 80 MG COMPRIMIDOS DE LIBERACION PROLONGADA , 28 COMPR... [Concomitant]
     Indication: PRODUCT USED FOR UNKNOWN INDICATION
     Dosage: 0-0-1 ()
     Route: 048
     Dates: start: 20060101

REACTIONS (4)
  - Hyperkalaemia [Recovered/Resolved]
  - Hyponatraemia [Recovered/Resolved]
  - Acute kidney injury [Recovered/Resolved]
  - Lactic acidosis [Recovered/Resolved]

NARRATIVE: CASE EVENT DATE: 20170909
